FAERS Safety Report 4719779-4 (Version None)
Quarter: 2005Q3

REPORT INFORMATION
  Report Type: 
  Country: None (occurrence: None)
  Receive Date: 20050721
  Receipt Date: 20041027
  Transmission Date: 20060218
  Serious: No
  Sender: FDA-Public Use
  Company Number: US-GLAXOSMITHKLINE-A0531560A

PATIENT
  Age: 74 Year
  Sex: Female

DRUGS (4)
  1. AVANDIA [Suspect]
     Dosage: 4MG PER DAY
     Route: 048
     Dates: start: 20040801
  2. METFORMIN [Concomitant]
  3. ADVIL [Concomitant]
  4. LIPITOR [Concomitant]

REACTIONS (2)
  - ARTHRALGIA [None]
  - CONSTIPATION [None]
